FAERS Safety Report 24367392 (Version 1)
Quarter: 2024Q3

REPORT INFORMATION
  Report Type: Spontaneous
  Country: US (occurrence: US)
  Receive Date: 20240926
  Receipt Date: 20240926
  Transmission Date: 20241017
  Serious: No
  Sender: AMGEN
  Company Number: US-AMGEN-USASP2024190177

PATIENT
  Age: 50 Year
  Sex: Male

DRUGS (3)
  1. TEPEZZA [Suspect]
     Active Substance: TEPROTUMUMAB-TRBW
     Indication: Toxic goitre
     Dosage: 830 MILLIGRAM, Q3WK, WEEK 0
     Route: 042
     Dates: start: 20240607
  2. TEPEZZA [Suspect]
     Active Substance: TEPROTUMUMAB-TRBW
     Dosage: 1660 MILLIGRAM, Q3WK X 7 DOSES, WEEK 3
     Route: 042
     Dates: start: 202406
  3. TEPEZZA [Suspect]
     Active Substance: TEPROTUMUMAB-TRBW
     Dosage: 1660 MILLIGRAM, Q3WK X 7 DOSES, WEEK 3
     Route: 042
     Dates: start: 20240809

REACTIONS (2)
  - Glycosylated haemoglobin increased [Recovering/Resolving]
  - Blood glucose increased [Recovering/Resolving]

NARRATIVE: CASE EVENT DATE: 20240906
